FAERS Safety Report 25709504 (Version 1)
Quarter: 2025Q3

REPORT INFORMATION
  Report Type: Spontaneous
  Country: SG (occurrence: SG)
  Receive Date: 20250821
  Receipt Date: 20250821
  Transmission Date: 20251021
  Serious: Yes (Other)
  Sender: TAKEDA
  Company Number: SG-TAKEDA-2025TUS072809

PATIENT
  Age: 77 Year
  Sex: Female

DRUGS (2)
  1. HUMAN IMMUNOGLOBULIN G [Suspect]
     Active Substance: HUMAN IMMUNOGLOBULIN G
     Indication: Stiff person syndrome
  2. BACLOFEN [Suspect]
     Active Substance: BACLOFEN
     Indication: Stiff person syndrome

REACTIONS (1)
  - Drug ineffective [Unknown]
